FAERS Safety Report 19454645 (Version 1)
Quarter: 2021Q2

REPORT INFORMATION
  Report Type: Spontaneous
  Country: US (occurrence: US)
  Receive Date: 20210623
  Receipt Date: 20210623
  Transmission Date: 20210717
  Serious: Yes (Other)
  Sender: FDA-Public Use
  Company Number: US-BRACCO-2021US02554

PATIENT
  Age: 29 Year
  Sex: Female

DRUGS (1)
  1. MULTIHANCE [Suspect]
     Active Substance: GADOBENATE DIMEGLUMINE
     Indication: MAGNETIC RESONANCE IMAGING

REACTIONS (9)
  - Gadolinium deposition disease [Unknown]
  - Pain in extremity [Unknown]
  - Skin induration [Unknown]
  - Pain of skin [Unknown]
  - Cognitive disorder [Unknown]
  - Arthralgia [Unknown]
  - Headache [Unknown]
  - Musculoskeletal chest pain [Unknown]
  - Skin hyperpigmentation [Unknown]
